FAERS Safety Report 5822036-6 (Version None)
Quarter: 2008Q3

REPORT INFORMATION
  Report Type: 
  Country: None (occurrence: None)
  Receive Date: 20080725
  Receipt Date: 20080702
  Transmission Date: 20090109
  Serious: Yes (Death, Hospitalization)
  Sender: FDA-Public Use
  Company Number: TW-RANBAXY-2008RR-16548

PATIENT

DRUGS (5)
  1. CEFTRIAXON 1 G PULBERE PENTRU SOLUTIE INJ./ PERFUZABILA [Suspect]
     Indication: PERITONITIS BACTERIAL
  2. VANCOMYCIN HYDROCHLORIDE [Suspect]
     Indication: PNEUMONIA
     Route: 042
  3. CIPROFLOXACIN [Suspect]
     Indication: PNEUMONIA
     Route: 042
  4. IMIPENEM [Concomitant]
     Indication: PNEUMONIA
     Route: 042
  5. METRONIDAZOLE HCL [Concomitant]
     Indication: PNEUMONIA

REACTIONS (2)
  - FUNGAL PERITONITIS [None]
  - PANCREATIC PSEUDOCYST [None]
